FAERS Safety Report 19314118 (Version 1)
Quarter: 2021Q2

REPORT INFORMATION
  Report Type: Spontaneous
  Country: US (occurrence: US)
  Receive Date: 20210527
  Receipt Date: 20210527
  Transmission Date: 20210717
  Serious: No
  Sender: FDA-Public Use
  Company Number: None

PATIENT
  Age: 31 Year
  Sex: Female
  Weight: 99 kg

DRUGS (4)
  1. INFLECTRA [Suspect]
     Active Substance: INFLIXIMAB-DYYB
     Indication: HIDRADENITIS
     Dosage: ?          OTHER FREQUENCY:ONCE AT WEEK;?
     Route: 042
     Dates: start: 20210503, end: 20210517
  2. ACETAMINOPHEN 1000MG PO,PRE?MED [Concomitant]
  3. NS 250ML [Concomitant]
  4. BENADRYL 50MG PO, PRE?MED [Concomitant]

REACTIONS (4)
  - Vomiting [None]
  - Feeling abnormal [None]
  - Infusion related reaction [None]
  - Blood pressure increased [None]

NARRATIVE: CASE EVENT DATE: 20210517
